FAERS Safety Report 10950246 (Version 11)
Quarter: 2015Q4

REPORT INFORMATION
  Report Type: Spontaneous
  Country: US (occurrence: US)
  Receive Date: 20150324
  Receipt Date: 20151209
  Transmission Date: 20160304
  Serious: Yes (Hospitalization, Congenital Anomaly, Other)
  Sender: FDA-Public Use
  Company Number: US-ELI_LILLY_AND_COMPANY-US201503005464

PATIENT
  Age: 0 Day

DRUGS (4)
  1. PROZAC [Suspect]
     Active Substance: FLUOXETINE HYDROCHLORIDE
     Indication: DEPRESSION
     Dosage: UNK, UNKNOWN
     Route: 064
  2. BENADRYL [Concomitant]
     Active Substance: DIPHENHYDRAMINE HYDROCHLORIDE
     Indication: INSOMNIA
     Dosage: UNK, UNKNOWN
     Route: 065
  3. BENADRYL [Concomitant]
     Active Substance: DIPHENHYDRAMINE HYDROCHLORIDE
     Indication: INSOMNIA
     Dosage: UNK, UNKNOWN
     Route: 065
  4. PROZAC [Suspect]
     Active Substance: FLUOXETINE HYDROCHLORIDE
     Indication: DEPRESSION
     Dosage: UNK, UNKNOWN
     Route: 064

REACTIONS (33)
  - Congenital anomaly [Unknown]
  - Cleft palate [Unknown]
  - Branchial cleft sinus [Unknown]
  - Accessory auricle [Unknown]
  - Microcephaly [Unknown]
  - Wheezing [Unknown]
  - Supraventricular extrasystoles [Recovered/Resolved]
  - Ventricular septal defect [Recovered/Resolved]
  - Tethered cord syndrome [Recovering/Resolving]
  - Developmental delay [Unknown]
  - Foetal exposure during pregnancy [Recovered/Resolved]
  - Pyelocaliectasis [Recovering/Resolving]
  - Vertical talus [Unknown]
  - Otitis media chronic [Unknown]
  - Weight gain poor [Unknown]
  - Nonreassuring foetal heart rate pattern [Unknown]
  - Tracheomalacia [Recovering/Resolving]
  - Congenital megaureter [Unknown]
  - Gastrointestinal hypomotility [Unknown]
  - Supraventricular tachycardia [Recovered/Resolved]
  - Hypertelorism of orbit [Unknown]
  - Pierre Robin syndrome [Unknown]
  - Procedural site reaction [Unknown]
  - Wound secretion [Unknown]
  - Branchial cyst [Unknown]
  - Micrognathia [Recovered/Resolved]
  - Foetal heart rate decreased [Unknown]
  - Speech disorder developmental [Unknown]
  - Ventricular extrasystoles [Recovered/Resolved]
  - Atrial septal defect [Recovered/Resolved]
  - Hypospadias [Unknown]
  - Velopharyngeal incompetence [Unknown]
  - Exposure during breast feeding [Unknown]

NARRATIVE: CASE EVENT DATE: 20110807
